FAERS Safety Report 7810275-4 (Version None)
Quarter: 2011Q4

REPORT INFORMATION
  Report Type: 
  Country: None (occurrence: None)
  Receive Date: 20111012
  Receipt Date: 20110928
  Transmission Date: 20120403
  Serious: Yes (Other)
  Sender: FDA-Public Use
  Company Number: PA-ROCHE-1001051

PATIENT
  Sex: Female

DRUGS (1)
  1. MABTHERA [Suspect]
     Indication: ARTHRITIS
     Route: 042
     Dates: start: 20101029

REACTIONS (1)
  - BREAST CANCER [None]
